FAERS Safety Report 15949976 (Version 1)
Quarter: 2019Q1

REPORT INFORMATION
  Report Type: Report from Study
  Country: SA (occurrence: SA)
  Receive Date: 20190211
  Receipt Date: 20190211
  Transmission Date: 20190417
  Serious: Yes (Hospitalization)
  Sender: FDA-Public Use
  Company Number: SA-PFIZER INC-2019056291

PATIENT

DRUGS (4)
  1. ETOPOSIDE. [Suspect]
     Active Substance: ETOPOSIDE
     Indication: LYMPHOMA
     Dosage: UNK, CYCLIC (ESHAP, 1ST SALVAGE)
  2. CISPLATIN. [Suspect]
     Active Substance: CISPLATIN
     Indication: LYMPHOMA
     Dosage: UNK, CYCLIC (ESHAP, 1ST SALVAGE)
  3. CYTARABINE. [Suspect]
     Active Substance: CYTARABINE
     Indication: LYMPHOMA
     Dosage: UNK, CYCLIC (ESHAP, 1ST SALVAGE)
  4. METHYLPREDNISOLONE. [Suspect]
     Active Substance: METHYLPREDNISOLONE
     Indication: LYMPHOMA
     Dosage: UNK, CYCLIC (ESHAP, 1ST SALVAGE)

REACTIONS (1)
  - Febrile infection [Unknown]
